FAERS Safety Report 9485819 (Version 1)
Quarter: 2013Q3

REPORT INFORMATION
  Report Type: Spontaneous
  Country: GB (occurrence: GB)
  Receive Date: 20130829
  Receipt Date: 20130829
  Transmission Date: 20140515
  Serious: Yes (Hospitalization)
  Sender: FDA-Public Use
  Company Number: PHFR2013GB004912

PATIENT
  Age: 48 Year
  Sex: Male

DRUGS (2)
  1. CLOZARIL [Suspect]
     Indication: SCHIZOPHRENIA
     Dosage: 350 MG, 150 MG IN MORNING AND 250 IN NIGHT
     Route: 048
     Dates: start: 20010701
  2. CLOZARIL [Suspect]
     Dosage: 150 MG, QD
     Route: 048

REACTIONS (1)
  - Abdominal abscess [Unknown]
